FAERS Safety Report 9948944 (Version 2)
Quarter: 2014Q2

REPORT INFORMATION
  Report Type: Spontaneous
  Country: FI (occurrence: FI)
  Receive Date: 20140304
  Receipt Date: 20140411
  Transmission Date: 20141212
  Serious: No
  Sender: FDA-Public Use
  Company Number: FI-ROCHE-1354895

PATIENT
  Age: 73 Year
  Sex: Female

DRUGS (5)
  1. XELODA [Suspect]
     Indication: BREAST CANCER
     Route: 048
     Dates: start: 20090115
  2. CYCLOPHOSPHAMIDE [Concomitant]
     Indication: BREAST CANCER
     Route: 065
  3. EPIRUBICIN [Concomitant]
     Indication: BREAST CANCER
  4. FLUOROURACIL [Concomitant]
     Indication: BREAST CANCER
  5. DOCETAXEL [Concomitant]
     Indication: BREAST CANCER

REACTIONS (4)
  - Pain in extremity [Recovered/Resolved]
  - Pain in extremity [Recovered/Resolved]
  - Peripheral swelling [Recovered/Resolved]
  - Blister [Recovered/Resolved]
